FAERS Safety Report 20007350 (Version 2)
Quarter: 2021Q4

REPORT INFORMATION
  Report Type: Spontaneous
  Country: US (occurrence: US)
  Receive Date: 20211028
  Receipt Date: 20211122
  Transmission Date: 20220303
  Serious: Yes (Hospitalization, Other)
  Sender: FDA-Public Use
  Company Number: US-DRREDDYS-SPO/USA/21/0142953

PATIENT
  Sex: Male

DRUGS (2)
  1. ENALAPRILAT [Suspect]
     Active Substance: ENALAPRILAT
     Indication: Cardiac failure
  2. ENALAPRILAT [Suspect]
     Active Substance: ENALAPRILAT
     Indication: Hypertension

REACTIONS (2)
  - Disease recurrence [Recovered/Resolved]
  - Angioedema [Recovered/Resolved]
